FAERS Safety Report 6051570-1 (Version None)
Quarter: 2009Q1

REPORT INFORMATION
  Report Type: 
  Country: None (occurrence: None)
  Receive Date: 20090126
  Receipt Date: 20090119
  Transmission Date: 20090719
  Serious: Yes (Hospitalization)
  Sender: FDA-Public Use
  Company Number: B0554803A

PATIENT
  Age: 69 Year
  Sex: Female

DRUGS (3)
  1. AUGMENTIN '125' [Suspect]
     Dosage: 1G THREE TIMES PER DAY
     Route: 048
     Dates: start: 20080304, end: 20080307
  2. COUMADIN [Suspect]
     Dosage: 2.5MG PER DAY
     Route: 048
     Dates: start: 20070601, end: 20080310
  3. ZECLAR [Suspect]
     Dosage: 500MG TWICE PER DAY
     Route: 048
     Dates: start: 20080308, end: 20080310

REACTIONS (3)
  - HAEMATURIA [None]
  - INTERNATIONAL NORMALISED RATIO INCREASED [None]
  - PROTHROMBIN TIME RATIO DECREASED [None]
